FAERS Safety Report 5195820-2 (Version None)
Quarter: 2006Q4

REPORT INFORMATION
  Report Type: 
  Country: None (occurrence: None)
  Receive Date: 20061227
  Receipt Date: 20061212
  Transmission Date: 20070319
  Serious: Yes (Death)
  Sender: FDA-Public Use
  Company Number: T200601110

PATIENT
  Sex: Male

DRUGS (11)
  1. LORCET-HD [Suspect]
     Indication: ANALGESIC EFFECT
     Dosage: ORAL
     Route: 048
     Dates: start: 20030101
  2. RESTORIL [Suspect]
     Indication: ANALGESIC EFFECT
     Dates: start: 20030101
  3. LORTAB [Suspect]
     Indication: ANALGESIC EFFECT
     Dates: start: 20030101
  4. TALWIN NX [Suspect]
     Indication: ANALGESIC EFFECT
     Dates: start: 20030101
  5. AMBIEN [Suspect]
     Indication: ANALGESIC EFFECT
     Dates: start: 20030101
  6. NORCO [Suspect]
     Indication: ANALGESIC EFFECT
     Dates: start: 20030101
  7. VICODIN [Suspect]
     Indication: ANALGESIC EFFECT
     Dates: start: 20030101
  8. TEMAZEPAM [Suspect]
     Indication: ANALGESIC EFFECT
     Dates: start: 20030101
  9. DALMANE [Suspect]
     Indication: ANALGESIC EFFECT
     Dates: start: 20030101
  10. LIDODERM [Suspect]
     Indication: ANALGESIC EFFECT
     Dates: start: 20030101
  11. LIDOPAIN ( ) [Suspect]
     Indication: ANALGESIC EFFECT
     Dates: start: 20030101

REACTIONS (10)
  - ABNORMAL DREAMS [None]
  - AMNESIA [None]
  - ANXIETY [None]
  - CONFUSIONAL STATE [None]
  - DEPRESSION [None]
  - HALLUCINATION [None]
  - MOOD ALTERED [None]
  - NERVOUSNESS [None]
  - SUICIDAL IDEATION [None]
  - VISUAL DISTURBANCE [None]
